FAERS Safety Report 11549355 (Version 1)
Quarter: 2015Q3

REPORT INFORMATION
  Report Type: Spontaneous
  Country: US (occurrence: US)
  Receive Date: 20150924
  Receipt Date: 20150924
  Transmission Date: 20151125
  Serious: No
  Sender: FDA-Public Use
  Company Number: US-INCYTE CORPORATION-2015IN002618

PATIENT
  Age: 72 Year
  Sex: Female

DRUGS (7)
  1. MAGNESIUM [Concomitant]
     Active Substance: MAGNESIUM
  2. COD LIVER OIL [Concomitant]
     Active Substance: COD LIVER OIL
  3. CALCIUM [Concomitant]
     Active Substance: CALCIUM
  4. HYDROXYUREA. [Concomitant]
     Active Substance: HYDROXYUREA
  5. BABY ASPIRIN [Concomitant]
     Active Substance: ASPIRIN
  6. MULTIVITAMIN                       /07504101/ [Concomitant]
     Active Substance: VITAMINS
  7. JAKAFI [Suspect]
     Active Substance: RUXOLITINIB
     Indication: POLYCYTHAEMIA VERA
     Dosage: 10 MG, BID
     Route: 048
     Dates: start: 20150421

REACTIONS (5)
  - Dizziness [Unknown]
  - Platelet count increased [Unknown]
  - Haemorrhage [Unknown]
  - Contusion [Unknown]
  - Drug ineffective [Unknown]

NARRATIVE: CASE EVENT DATE: 20150512
